FAERS Safety Report 4729385-3 (Version None)
Quarter: 2005Q3

REPORT INFORMATION
  Report Type: 
  Country: None (occurrence: None)
  Receive Date: 20050729
  Receipt Date: 20050720
  Transmission Date: 20060218
  Serious: Yes (Death, Hospitalization)
  Sender: FDA-Public Use
  Company Number: US-AMGEN-KDL143558

PATIENT
  Sex: Female

DRUGS (1)
  1. ENBREL [Suspect]
     Indication: RHEUMATOID ARTHRITIS
     Route: 058

REACTIONS (4)
  - CARDIAC ARREST [None]
  - CHEST PAIN [None]
  - DYSPNOEA [None]
  - KNEE ARTHROPLASTY [None]
